FAERS Safety Report 16701488 (Version 21)
Quarter: 2022Q4

REPORT INFORMATION
  Report Type: Spontaneous
  Country: GB (occurrence: GB)
  Receive Date: 20190814
  Receipt Date: 20221007
  Transmission Date: 20230112
  Serious: Yes (Hospitalization, Other)
  Sender: FDA-Public Use
  Company Number: GB-EMA-DD-20190311-KUMARSINGH_A-170148

PATIENT
  Age: 26 Year
  Sex: Female

DRUGS (50)
  1. VENLAFAXINE [Suspect]
     Active Substance: VENLAFAXINE HYDROCHLORIDE
     Indication: Product used for unknown indication
     Dosage: UNK, START IN ??-MAR-2019 00:00
     Route: 048
  2. VENLAFAXINE [Suspect]
     Active Substance: VENLAFAXINE HYDROCHLORIDE
     Dosage: UNK (START DATE:??-MAR-2019); ;
     Route: 065
  3. VENLAFAXINE [Suspect]
     Active Substance: VENLAFAXINE HYDROCHLORIDE
     Indication: Anxiolytic therapy
     Dosage: UNK, START MAR-2019; ;
     Route: 048
  4. ARIPIPRAZOLE [Suspect]
     Active Substance: ARIPIPRAZOLE
     Indication: Product used for unknown indication
     Dosage: UNK
     Route: 048
     Dates: start: 201903
  5. ARIPIPRAZOLE [Suspect]
     Active Substance: ARIPIPRAZOLE
     Indication: Schizophrenia
  6. ARIPIPRAZOLE [Suspect]
     Active Substance: ARIPIPRAZOLE
     Indication: Affective disorder
  7. ARIPIPRAZOLE [Suspect]
     Active Substance: ARIPIPRAZOLE
     Indication: Affective disorder
  8. CLOZARIL [Suspect]
     Active Substance: CLOZAPINE
     Indication: Schizophrenia
     Dosage: 200 MG, PM
     Route: 048
  9. CLOZARIL [Suspect]
     Active Substance: CLOZAPINE
     Indication: Depression
     Dosage: UNK
     Route: 048
     Dates: start: 20181128
  10. CLOZARIL [Suspect]
     Active Substance: CLOZAPINE
     Dosage: 100 MG AM (300 MG, QD) 100 MG AM AND 200 MG PM), 100 MG QD
     Route: 048
     Dates: start: 20160606
  11. CLOZARIL [Suspect]
     Active Substance: CLOZAPINE
     Dosage: 550 MG, UNK
     Route: 048
     Dates: start: 201903
  12. CLOZARIL [Suspect]
     Active Substance: CLOZAPINE
     Dosage: 300 MILLIGRAM, QD, (300 MG, QD (100 MG AM AND 200 MG PM))
     Route: 048
     Dates: start: 20160606
  13. CLOZARIL [Suspect]
     Active Substance: CLOZAPINE
     Dosage: 300 MG, QD (100 MG AM AND 200 MG PM)
     Route: 048
     Dates: start: 20160606
  14. CLOZARIL [Suspect]
     Active Substance: CLOZAPINE
     Dosage: 300 MG, QD (100 MG AM AND 200 MG PM)
     Route: 048
     Dates: start: 20160606
  15. CLOZARIL [Suspect]
     Active Substance: CLOZAPINE
     Dosage: UNK
     Route: 048
     Dates: start: 20181128
  16. CLOZARIL [Suspect]
     Active Substance: CLOZAPINE
     Dosage: 550 MG,
     Route: 048
     Dates: start: 201903
  17. TOPIRAMATE [Suspect]
     Active Substance: TOPIRAMATE
     Indication: Affective disorder
     Dosage: UNK ()
     Route: 048
  18. TOPIRAMATE [Suspect]
     Active Substance: TOPIRAMATE
     Dosage: 50 MILLIGRAM, DAILY, 25 MG, BID
     Route: 048
  19. TOPIRAMATE [Suspect]
     Active Substance: TOPIRAMATE
     Dosage: 25 MG, BID
     Route: 048
  20. TOPIRAMATE [Suspect]
     Active Substance: TOPIRAMATE
     Dosage: UNK ()
     Route: 048
  21. TOPIRAMATE [Suspect]
     Active Substance: TOPIRAMATE
     Dosage: 50 MILLIGRAM, DAILY, 25 MG, BID
     Route: 048
  22. TOPIRAMATE [Suspect]
     Active Substance: TOPIRAMATE
     Dosage: 25 MILLIGRAM, BID (25 MG, BID)
     Route: 048
     Dates: start: 201903
  23. TOPIRAMATE [Suspect]
     Active Substance: TOPIRAMATE
     Dosage: 100 MG, QD (50 MG QD, 50 MG QD)
     Route: 048
  24. TOPIRAMATE [Suspect]
     Active Substance: TOPIRAMATE
     Dosage: 100 MG, QD (50 MG QD, 50 MG QD)
     Route: 048
  25. TOPIRAMATE [Suspect]
     Active Substance: TOPIRAMATE
     Dosage: 100 MG, QD (50 MG QD, 50 MG QD)
     Route: 048
  26. MIRTAZAPINE [Suspect]
     Active Substance: MIRTAZAPINE
     Indication: Depression
     Dosage: 45 MILLIGRAM, (45 MG, UNK);
     Route: 048
     Dates: start: 201903, end: 20220208
  27. MIRTAZAPINE [Suspect]
     Active Substance: MIRTAZAPINE
     Dosage: UNK
     Route: 048
     Dates: start: 201903
  28. MIRTAZAPINE [Suspect]
     Active Substance: MIRTAZAPINE
     Dosage: 45 MG, UNK
     Route: 048
  29. MIRTAZAPINE [Suspect]
     Active Substance: MIRTAZAPINE
     Dosage: 45 MG, UNK
     Route: 048
  30. TOPIRAMATE [Suspect]
     Active Substance: TOPIRAMATE
     Indication: Affective disorder
     Dosage: 50 MILLIGRAM, DAILY
     Route: 048
  31. TOPIRAMATE [Suspect]
     Active Substance: TOPIRAMATE
     Dosage: UNK
     Route: 048
  32. TOPIRAMATE [Suspect]
     Active Substance: TOPIRAMATE
     Dosage: 25 MG, BID
     Route: 048
  33. TOPIRAMATE [Suspect]
     Active Substance: TOPIRAMATE
     Dosage: UNK
     Route: 048
     Dates: start: 201903
  34. ARIPIPRAZOLE [Suspect]
     Active Substance: ARIPIPRAZOLE
     Indication: Affective disorder
     Dosage: UNK, START MAR-2019; ;
     Route: 065
     Dates: start: 201903
  35. CLOZARIL [Suspect]
     Active Substance: CLOZAPINE
     Indication: Schizophrenia
     Dosage: 300 MG, QD (100 MG AM AND 200 MG PM)
     Route: 048
     Dates: start: 20160606
  36. CLOZARIL [Suspect]
     Active Substance: CLOZAPINE
     Indication: Depression
     Dosage: UNK
     Route: 048
     Dates: start: 20181128
  37. CLOZARIL [Suspect]
     Active Substance: CLOZAPINE
     Dosage: 100 MG AM (300 MG, QD) 100 MG AM AND 200 MG PM), 100 MG QD
     Route: 048
     Dates: start: 20160606
  38. CLOZARIL [Suspect]
     Active Substance: CLOZAPINE
     Dosage: 550 MG, UNK
     Route: 048
     Dates: start: 201903
  39. CLOZARIL [Suspect]
     Active Substance: CLOZAPINE
     Dosage: 300 MILLIGRAM, QD, (300 MG, QD (100 MG AM AND 200 MG PM))
     Route: 048
     Dates: start: 20160606
  40. TOPIRAMATE [Suspect]
     Active Substance: TOPIRAMATE
     Indication: Affective disorder
     Dosage: 25 MG, BID
     Route: 048
     Dates: start: 201603
  41. PREGABALIN [Concomitant]
     Active Substance: PREGABALIN
     Indication: Anxiolytic therapy
     Dosage: 75 MG, UNK
     Route: 048
  42. PREGABALIN [Concomitant]
     Active Substance: PREGABALIN
     Dosage: 75 MG, UNK
     Route: 048
  43. PREGABALIN [Concomitant]
     Active Substance: PREGABALIN
     Dosage: 75 MG, UNK
     Route: 048
  44. PREGABALIN [Concomitant]
     Active Substance: PREGABALIN
     Dosage: 75 MG, UNK
     Route: 048
  45. PREGABALIN [Concomitant]
     Active Substance: PREGABALIN
     Dosage: 75 MG, UNK
     Route: 048
  46. PREGABALIN [Concomitant]
     Active Substance: PREGABALIN
     Dosage: 75 MG, UNK
     Route: 048
  47. PREGABALIN [Concomitant]
     Active Substance: PREGABALIN
     Route: 048
  48. PREGABALIN [Concomitant]
     Active Substance: PREGABALIN
     Dosage: 75 MILLIGRAM, (75 MG, UNK)
     Route: 048
  49. PREGABALIN [Concomitant]
     Active Substance: PREGABALIN
     Dosage: 75 MILLIGRAM, (75 MG, UNK)
     Route: 048
  50. PREGABALIN [Concomitant]
     Active Substance: PREGABALIN
     Dosage: 75 MILLIGRAM, (75 MG, UNK)
     Route: 048

REACTIONS (6)
  - Pyrexia [Recovered/Resolved]
  - Overdose [Unknown]
  - Hospitalisation [Unknown]
  - Infection [Unknown]
  - Off label use [Unknown]
  - Product use in unapproved indication [Unknown]

NARRATIVE: CASE EVENT DATE: 20161010
